FAERS Safety Report 6862570-3 (Version None)
Quarter: 2010Q3

REPORT INFORMATION
  Report Type: 
  Country: None (occurrence: None)
  Receive Date: 20100719
  Receipt Date: 20100709
  Transmission Date: 20110219
  Serious: Yes (Other)
  Sender: FDA-Public Use
  Company Number: 2010SP019410

PATIENT
  Age: 48 Year
  Sex: Female

DRUGS (8)
  1. IMPLANON [Suspect]
     Indication: CONTRACEPTION
     Dosage: 1 DF; SC
     Route: 058
     Dates: start: 20080402
  2. LISINOPRIL [Concomitant]
  3. DIGOXIN [Concomitant]
  4. AMILORIDE HYDROCHLORIDE [Concomitant]
  5. OMEPRAZOLE [Concomitant]
  6. METFORMIN HYDROCHLORIDE [Concomitant]
  7. ASPIRIN [Concomitant]
  8. FUROSEMIDE [Concomitant]

REACTIONS (9)
  - ATRIAL FIBRILLATION [None]
  - BLOOD GLUCOSE INCREASED [None]
  - CARDITIS [None]
  - CONGESTIVE CARDIOMYOPATHY [None]
  - INCORRECT DRUG ADMINISTRATION DURATION [None]
  - LEFT VENTRICULAR DYSFUNCTION [None]
  - LEFT VENTRICULAR HYPERTROPHY [None]
  - PULMONARY HYPERTENSION [None]
  - TYPE 2 DIABETES MELLITUS [None]
